FAERS Safety Report 10898143 (Version 1)
Quarter: 2015Q1

REPORT INFORMATION
  Report Type: Spontaneous
  Country: US (occurrence: None)
  Receive Date: 20150302
  Receipt Date: 20150302
  Transmission Date: 20150721
  Serious: No
  Sender: FDA-Public Use
  Company Number: None

PATIENT
  Age: 10 Year
  Sex: Female

DRUGS (1)
  1. LUPRON DEPOT [Suspect]
     Active Substance: LEUPROLIDE ACETATE
     Indication: PRECOCIOUS PUBERTY
     Dosage: EVERY 25-28 DAYS
     Route: 030
     Dates: start: 20141201

REACTIONS (2)
  - Movement disorder [None]
  - Sensory disturbance [None]

NARRATIVE: CASE EVENT DATE: 20150225
